FAERS Safety Report 15650996 (Version 2)
Quarter: 2018Q4

REPORT INFORMATION
  Report Type: Spontaneous
  Country: US (occurrence: US)
  Receive Date: 20181123
  Receipt Date: 20181201
  Transmission Date: 20190205
  Serious: Yes (Hospitalization, Other)
  Sender: FDA-Public Use
  Company Number: US-AUROBINDO-AUR-APL-2018-055655

PATIENT
  Age: 1 Day
  Sex: Male
  Weight: .9 kg

DRUGS (7)
  1. ACETAMINOPHEN. [Suspect]
     Active Substance: ACETAMINOPHEN
     Indication: PRODUCT USED FOR UNKNOWN INDICATION
     Dosage: UNK
     Route: 064
  2. OXYCODONE [Suspect]
     Active Substance: OXYCODONE
     Indication: PRODUCT USED FOR UNKNOWN INDICATION
     Dosage: UNK
     Route: 064
  3. ACETYLCYSTEINE. [Suspect]
     Active Substance: ACETYLCYSTEINE
     Dosage: 44.75MG MIXED IN 0.895ML OF 5% GLUCOSE IN WATER OVER 4H
     Route: 042
  4. PHENCYCLIDINE [Suspect]
     Active Substance: PHENCYCLIDINE
     Indication: PRODUCT USED FOR UNKNOWN INDICATION
     Dosage: UNK
     Route: 064
  5. METHADONE [Suspect]
     Active Substance: METHADONE HYDROCHLORIDE
     Indication: PRODUCT USED FOR UNKNOWN INDICATION
     Dosage: UNK
     Route: 064
  6. ACETYLCYSTEINE. [Suspect]
     Active Substance: ACETYLCYSTEINE
     Indication: PRODUCT USED FOR UNKNOWN INDICATION
     Dosage: 134.5MG MIXED IN 2.7 ML OF 5% GLUCOSE IN WATER OVER 1H
     Route: 042
  7. ACETYLCYSTEINE. [Suspect]
     Active Substance: ACETYLCYSTEINE
     Dosage: 89.5MG MIXED IN 1.79ML OF 5% GLUCOSE IN WATER OVER 16H
     Route: 042

REACTIONS (8)
  - Pulmonary oedema [Recovered/Resolved]
  - Premature baby [Unknown]
  - Sedation [Recovering/Resolving]
  - Fluid overload [Unknown]
  - Foetal exposure during pregnancy [Unknown]
  - Toxicity to various agents [Recovering/Resolving]
  - Withdrawal syndrome [Recovering/Resolving]
  - Acidosis [Recovering/Resolving]
